FAERS Safety Report 20379494 (Version 1)
Quarter: 2022Q1

REPORT INFORMATION
  Report Type: Spontaneous
  Country: US (occurrence: None)
  Receive Date: 20220126
  Receipt Date: 20220126
  Transmission Date: 20220424
  Serious: Yes (Hospitalization)
  Sender: FDA-Public Use
  Company Number: None

PATIENT
  Sex: Female

DRUGS (11)
  1. MYCOPHENOLIC ACID [Suspect]
     Active Substance: MYCOPHENOLIC ACID
     Indication: Organ transplant
     Route: 048
     Dates: start: 20170726
  2. LANTUS [Concomitant]
  3. LASIX [Concomitant]
  4. LISINOPRIL [Concomitant]
     Active Substance: LISINOPRIL
  5. METOPROLOL [Concomitant]
  6. NIFEDIPINE [Concomitant]
  7. NOVOLOG INJ FLEXPEN [Concomitant]
  8. PHOSLO CAP [Concomitant]
  9. PLAQUENIL TAB [Concomitant]
  10. PREDNISONE TAB [Concomitant]
  11. SIMVASTATIN [Concomitant]

REACTIONS (1)
  - Hospitalisation [None]
